FAERS Safety Report 4566344-8 (Version None)
Quarter: 2005Q1

REPORT INFORMATION
  Report Type: 
  Country: None (occurrence: None)
  Receive Date: 20050126
  Receipt Date: 20050126
  Transmission Date: 20050727
  Serious: Yes (Other)
  Sender: FDA-Public Use
  Company Number: None

PATIENT
  Age: 84 Year
  Sex: Male
  Weight: 94.3 kg

DRUGS (2)
  1. BRIMONIDINE TARTRATE [Suspect]
  2. MELOXICAM [Concomitant]

REACTIONS (3)
  - EYE SWELLING [None]
  - FLUSHING [None]
  - PRURITUS [None]
